APPROVED DRUG PRODUCT: IOBENGUANE SULFATE I 131
Active Ingredient: IOBENGUANE SULFATE I-131
Strength: 2.3mCi/ML
Dosage Form/Route: INJECTABLE;INJECTION
Application: N020084 | Product #001
Applicant: PHARMALUCENCE INC
Approved: Mar 25, 1994 | RLD: No | RS: No | Type: DISCN